FAERS Safety Report 15854944 (Version 2)
Quarter: 2019Q1

REPORT INFORMATION
  Report Type: Report from Study
  Country: ZA (occurrence: ZA)
  Receive Date: 20190122
  Receipt Date: 20190318
  Transmission Date: 20190417
  Serious: Yes (Hospitalization, Other)
  Sender: FDA-Public Use
  Company Number: ZA-GILEAD-2019-0384815

PATIENT
  Age: 32 Year
  Sex: Female
  Weight: 85.3 kg

DRUGS (4)
  1. AMOXIL [AMOXICILLIN] [Concomitant]
  2. METRONIDAZOLE. [Concomitant]
     Active Substance: METRONIDAZOLE
  3. CALCIUM [Concomitant]
     Active Substance: CALCIUM
  4. EMTRICITABINE/TENOFOVIR DISOPROXIL FUMARATE [Suspect]
     Active Substance: EMTRICITABINE\TENOFOVIR DISOPROXIL FUMARATE
     Indication: PROPHYLAXIS AGAINST HIV INFECTION
     Dosage: 500 MG DAILY
     Route: 065
     Dates: start: 20180223

REACTIONS (4)
  - Pre-eclampsia [Recovering/Resolving]
  - Premature separation of placenta [Recovered/Resolved]
  - Foetal death [Recovered/Resolved]
  - Maternal exposure during pregnancy [Recovered/Resolved]

NARRATIVE: CASE EVENT DATE: 20180223
